FAERS Safety Report 25932474 (Version 1)
Quarter: 2025Q4

REPORT INFORMATION
  Report Type: Spontaneous
  Country: US (occurrence: US)
  Receive Date: 20251017
  Receipt Date: 20251017
  Transmission Date: 20260118
  Serious: Yes (Life-Threatening, Hospitalization, Other)
  Sender: AMGEN
  Company Number: US-AMGEN-USASP2025201526

PATIENT
  Age: 69 Year
  Sex: Male
  Weight: 74.286 kg

DRUGS (26)
  1. KANJINTI [Suspect]
     Active Substance: TRASTUZUMAB-ANNS
     Indication: Colorectal cancer
     Dosage: 450 MILLIGRAM
     Route: 065
     Dates: start: 20250407
  2. KANJINTI [Suspect]
     Active Substance: TRASTUZUMAB-ANNS
     Dosage: 410 MILLIGRAM
     Route: 065
     Dates: start: 20250428
  3. KANJINTI [Suspect]
     Active Substance: TRASTUZUMAB-ANNS
     Dosage: 410 MILLIGRAM
     Route: 065
     Dates: start: 20250529
  4. KANJINTI [Suspect]
     Active Substance: TRASTUZUMAB-ANNS
     Dosage: 410 MILLIGRAM
     Route: 065
     Dates: start: 20250609
  5. DARBEPOETIN ALFA [Suspect]
     Active Substance: DARBEPOETIN ALFA
     Indication: Chronic kidney disease
     Dosage: 60 MICROGRAM, Q4WK
     Route: 058
     Dates: start: 20250224
  6. TUKYSA [Suspect]
     Active Substance: TUCATINIB
     Indication: Colorectal cancer
     Dosage: 300 MILLIGRAM, BID
     Route: 048
     Dates: start: 20240426
  7. TUKYSA [Suspect]
     Active Substance: TUCATINIB
     Dosage: 300 MILLIGRAM, BID
     Route: 048
     Dates: start: 20250519, end: 20250609
  8. TUKYSA [Suspect]
     Active Substance: TUCATINIB
     Dosage: 300 MILLIGRAM, BID
     Route: 048
     Dates: start: 20250610
  9. ONDANSETRON [Concomitant]
     Active Substance: ONDANSETRON
  10. LACTULOSE [Concomitant]
     Active Substance: LACTULOSE
  11. LIDOCAINE\PRILOCAINE [Concomitant]
     Active Substance: LIDOCAINE\PRILOCAINE
  12. ATIVAN [Concomitant]
     Active Substance: LORAZEPAM
  13. ALPHA LIPOIC ACID [Concomitant]
     Active Substance: .ALPHA.-LIPOIC ACID
  14. LIPITOR [Concomitant]
     Active Substance: ATORVASTATIN CALCIUM
  15. PROPRANOLOL [Concomitant]
     Active Substance: PROPRANOLOL HYDROCHLORIDE
  16. SPIRONOLACTONE [Concomitant]
     Active Substance: SPIRONOLACTONE
  17. COMPAZINE [Concomitant]
     Active Substance: PROCHLORPERAZINE MALEATE
  18. FERROUS SULFATE [Concomitant]
     Active Substance: FERROUS SULFATE
  19. FUROSEMIDE [Concomitant]
     Active Substance: FUROSEMIDE
  20. TRIAMCINOLONE [Concomitant]
     Active Substance: TRIAMCINOLONE
  21. BUMETANIDE [Concomitant]
     Active Substance: BUMETANIDE
  22. ACETAMINOPHEN\HYDROCODONE [Concomitant]
     Active Substance: ACETAMINOPHEN\HYDROCODONE
  23. TUCATINIB [Concomitant]
     Active Substance: TUCATINIB
  24. IMODIUM A-D [Concomitant]
     Active Substance: LOPERAMIDE HYDROCHLORIDE
  25. FLUOROURACIL\LEUCOVORIN CALCIUM\OXALIPLATIN [Concomitant]
     Active Substance: FLUOROURACIL\LEUCOVORIN CALCIUM\OXALIPLATIN
  26. AVASTIN [Concomitant]
     Active Substance: BEVACIZUMAB

REACTIONS (24)
  - Shock haemorrhagic [Unknown]
  - Hepatic haemorrhage [Unknown]
  - Intestinal perforation [Unknown]
  - Nephrogenic anaemia [Unknown]
  - Metastases to liver [Unknown]
  - Gastrointestinal haemorrhage [Unknown]
  - Ascites [Unknown]
  - Hypokalaemia [Unknown]
  - Chronic kidney disease [Unknown]
  - Neuropathic arthropathy [Unknown]
  - Arteriosclerosis coronary artery [Unknown]
  - Lung neoplasm malignant [Unknown]
  - Hydronephrosis [Unknown]
  - Neuropathy peripheral [Unknown]
  - Retroperitoneal cancer [Unknown]
  - Drug eruption [Unknown]
  - Hyponatraemia [Unknown]
  - Oedema [Unknown]
  - Off label use [Unknown]
  - Anaemia [Unknown]
  - Disease progression [Unknown]
  - Claustrophobia [Unknown]
  - Dehydration [Unknown]
  - Pollakiuria [Unknown]
